FAERS Safety Report 6044487-X (Version None)
Quarter: 2009Q1

REPORT INFORMATION
  Report Type: 
  Country: None (occurrence: None)
  Receive Date: 20090114
  Receipt Date: 20090114
  Transmission Date: 20090719
  Serious: Yes (Hospitalization)
  Sender: FDA-Public Use
  Company Number: None

PATIENT
  Age: 61 Year
  Sex: Male
  Weight: 110 kg

DRUGS (1)
  1. PREGABALIN [Suspect]
     Dosage: 50 MG TID PO
     Route: 048
     Dates: start: 20081128, end: 20081205

REACTIONS (1)
  - CARDIAC FAILURE CONGESTIVE [None]
